FAERS Safety Report 15957271 (Version 1)
Quarter: 2019Q1

REPORT INFORMATION
  Report Type: Spontaneous
  Country: US (occurrence: US)
  Receive Date: 20190123
  Receipt Date: 20190123
  Transmission Date: 20190417
  Serious: Yes (Other)
  Sender: FDA-Public Use
  Company Number: None

PATIENT
  Age: 61 Year
  Sex: Female
  Weight: 77.11 kg

DRUGS (2)
  1. HYSINGLA ER [Suspect]
     Active Substance: HYDROCODONE BITARTRATE
     Indication: BACK PAIN
     Dates: start: 201601
  2. HYSINGLA ER [Suspect]
     Active Substance: HYDROCODONE BITARTRATE
     Indication: PAIN IN EXTREMITY

REACTIONS (7)
  - Bedridden [None]
  - Hypertension [None]
  - Insurance issue [None]
  - Hyperhidrosis [None]
  - Inability to afford medication [None]
  - Asthenia [None]
  - Heart rate increased [None]

NARRATIVE: CASE EVENT DATE: 20190101
